FAERS Safety Report 17630841 (Version 2)
Quarter: 2020Q2

REPORT INFORMATION
  Report Type: Report from Study
  Country: DE (occurrence: DE)
  Receive Date: 20200406
  Receipt Date: 20200414
  Transmission Date: 20200713
  Serious: Yes (Hospitalization)
  Sender: FDA-Public Use
  Company Number: DE-INCYTE CORPORATION-2020IN003192

PATIENT

DRUGS (2)
  1. INCB018424 [Suspect]
     Active Substance: RUXOLITINIB
     Indication: PRIMARY MYELOFIBROSIS
     Dosage: 40 MG, QD
     Route: 065
     Dates: start: 20170510
  2. L THYROXINE [Concomitant]
     Active Substance: LEVOTHYROXINE SODIUM
     Indication: HYPOTHYROIDISM
     Dosage: 125 UG
     Route: 065
     Dates: start: 20010501

REACTIONS (2)
  - Gastrointestinal haemorrhage [Recovered/Resolved]
  - Varices oesophageal [Recovered/Resolved]

NARRATIVE: CASE EVENT DATE: 20190128
